FAERS Safety Report 10243786 (Version 1)
Quarter: 2014Q2

REPORT INFORMATION
  Report Type: Spontaneous
  Country: CH (occurrence: CH)
  Receive Date: 20140618
  Receipt Date: 20140618
  Transmission Date: 20141212
  Serious: Yes (Other)
  Sender: FDA-Public Use
  Company Number: CH-PFIZER INC-2014160548

PATIENT
  Age: 38 Year
  Sex: Male

DRUGS (8)
  1. LYRICA [Suspect]
     Indication: NEURALGIA
     Dosage: 75 MG, 3X/DAY
     Dates: start: 20140205, end: 20140226
  2. LYRICA [Suspect]
     Dosage: 75 MG, 4X/DAY
     Route: 048
     Dates: start: 20140227, end: 20140304
  3. PRIVIGEN [Suspect]
     Indication: GUILLAIN-BARRE SYNDROME
     Dosage: 0.4 GRAMS PER KG, CYCLIC
     Dates: start: 20140131, end: 20140204
  4. PRIVIGEN [Suspect]
     Dosage: 0.4 GRAMS PER KG, CYCLIC
     Dates: start: 20140214
  5. CONCOR [Concomitant]
     Indication: TACHYCARDIA
     Dosage: 2.5 MG, UNK
     Route: 048
     Dates: start: 20140225, end: 20140305
  6. CONCOR [Concomitant]
     Indication: HYPERTENSION
  7. LISINOPRIL [Concomitant]
     Indication: HYPERTENSION
     Dosage: 5 MG, UNK
     Dates: start: 20140225, end: 20140304
  8. FRAGMIN [Concomitant]
     Indication: THROMBOSIS PROPHYLAXIS
     Dosage: 5000 IU, UNK
     Route: 058
     Dates: start: 20140131, end: 20140331

REACTIONS (5)
  - Liver disorder [Recovering/Resolving]
  - Hepatosplenomegaly [Recovering/Resolving]
  - Alanine aminotransferase increased [Recovering/Resolving]
  - Aspartate aminotransferase increased [Recovering/Resolving]
  - Gamma-glutamyltransferase increased [Recovering/Resolving]
